FAERS Safety Report 7912142-4 (Version None)
Quarter: 2011Q4

REPORT INFORMATION
  Report Type: 
  Country: None (occurrence: None)
  Receive Date: 20111114
  Receipt Date: 20111107
  Transmission Date: 20120403
  Serious: Yes (Life-Threatening, Hospitalization, Other)
  Sender: FDA-Public Use
  Company Number: GR-PFIZER INC-2011272624

PATIENT
  Age: 50 Year
  Sex: Male

DRUGS (9)
  1. VORICONAZOLE [Concomitant]
     Indication: TRICHOSPORON INFECTION
     Dosage: 6 MG/KG  EVERY 12 HOURS (LOADING DOSE)
     Route: 042
  2. VANCOMYCIN [Concomitant]
     Indication: CLOSTRIDIUM TEST POSITIVE
  3. VORICONAZOLE [Concomitant]
     Dosage: 200 MG/DAILY
  4. METRONIDAZOLE [Concomitant]
     Indication: CLOSTRIDIUM TEST POSITIVE
     Route: 042
  5. VORICONAZOLE [Concomitant]
     Dosage: 4 MG/KG/ TWICE DAILY
     Route: 042
  6. CEFEPIME [Concomitant]
     Indication: CLOSTRIDIUM TEST POSITIVE
  7. FLUCONAZOLE [Suspect]
     Indication: ANTIBIOTIC PROPHYLAXIS
     Dosage: 200 MG/ DAILY
  8. METRONIDAZOLE [Concomitant]
     Indication: INFECTION
  9. FLUCONAZOLE [Suspect]
     Indication: CLOSTRIDIUM TEST POSITIVE

REACTIONS (4)
  - DRUG INEFFECTIVE [None]
  - SMALL INTESTINAL PERFORATION [None]
  - FUNGAEMIA [None]
  - INFECTION [None]
